FAERS Safety Report 8505625-X (Version None)
Quarter: 2012Q3

REPORT INFORMATION
  Report Type: 
  Country: None (occurrence: None)
  Receive Date: 20120712
  Receipt Date: 20120706
  Transmission Date: 20120928
  Serious: Yes (Other)
  Sender: FDA-Public Use
  Company Number: US-B.I. PHARMACEUTICALS,INC./RIDGEFIELD-2012-BP-13456BP

PATIENT
  Sex: Female

DRUGS (6)
  1. ZANTAC [Concomitant]
     Indication: GASTROOESOPHAGEAL REFLUX DISEASE
  2. LOTENSIN [Concomitant]
     Indication: HYPERTENSION
  3. PRADAXA [Suspect]
     Indication: ATRIAL FIBRILLATION
     Dosage: 300 MG
     Route: 048
     Dates: start: 20111129, end: 20120524
  4. ALBUTEROL [Concomitant]
  5. METFORMIN HCL [Concomitant]
     Indication: TYPE 2 DIABETES MELLITUS
  6. DITROPAN [Concomitant]
     Indication: INCONTINENCE

REACTIONS (4)
  - SWELLING [None]
  - DYSPNOEA [None]
  - SWELLING FACE [None]
  - HYPOAESTHESIA [None]
